FAERS Safety Report 8895246 (Version 1)
Quarter: 2012Q4

REPORT INFORMATION
  Report Type: 
  Country: US (occurrence: US)
  Receive Date: 20121107
  Receipt Date: 20121107
  Transmission Date: 20130627
  Serious: No
  Sender: FDA-Public Use
  Company Number: US-AMGEN-USASP2011061430

PATIENT
  Age: 58 Year
  Sex: Female

DRUGS (3)
  1. ENBREL [Suspect]
     Indication: RHEUMATOID ARTHRITIS
     Dosage: 50 mg, qwk
     Dates: start: 20090109
  2. PLAQUENIL [Concomitant]
     Dosage: 2 mg, UNK
     Dates: start: 2005
  3. TREXALL [Concomitant]
     Dosage: UNK
     Dates: start: 2006

REACTIONS (1)
  - Seasonal allergy [Recovered/Resolved]
